FAERS Safety Report 6135785-X (Version None)
Quarter: 2009Q1

REPORT INFORMATION
  Report Type: 
  Country: None (occurrence: None)
  Receive Date: 20090327
  Receipt Date: 20090326
  Transmission Date: 20090719
  Serious: Yes (Life-Threatening, Hospitalization)
  Sender: FDA-Public Use
  Company Number: GB-ROXANE LABORATORIES, INC.-2009-DE-02328GD

PATIENT
  Age: 16 Year
  Sex: Male

DRUGS (2)
  1. ACETAMINOPHEN W/ CODEINE [Suspect]
     Route: 048
  2. FLECAINIDE ACETATE [Suspect]

REACTIONS (8)
  - ALTERED STATE OF CONSCIOUSNESS [None]
  - CHEST DISCOMFORT [None]
  - CIRCULATORY COLLAPSE [None]
  - ELECTROCARDIOGRAM QRS COMPLEX PROLONGED [None]
  - LACTIC ACIDOSIS [None]
  - OVERDOSE [None]
  - SUPRAVENTRICULAR TACHYCARDIA [None]
  - VOMITING [None]
